FAERS Safety Report 6402417-2 (Version None)
Quarter: 2009Q4

REPORT INFORMATION
  Report Type: 
  Country: None (occurrence: None)
  Receive Date: 20091013
  Receipt Date: 20091001
  Transmission Date: 20100525
  Serious: Yes (Hospitalization)
  Sender: FDA-Public Use
  Company Number: 2004US000717

PATIENT
  Age: 32 Year
  Sex: Male

DRUGS (6)
  1. PROGRAF [Suspect]
     Indication: HEART TRANSPLANT
     Dosage: 3.00 MG, BID
  2. CELLCEPT [Suspect]
     Indication: IMMUNOSUPPRESSION
     Dosage: 1250.00 MG, BID
  3. PREDNISONE TAB [Suspect]
     Indication: IMMUNOSUPPRESSION
     Dosage: 20.00 MG, UID/QD, UNK
  4. ACYCLOVIR [Concomitant]
  5. SULFAMETHOXAZOLE AND TRIMETHOPRIM [Concomitant]
  6. MYCOPHENOLATE MOFETIL [Concomitant]

REACTIONS (3)
  - ENCEPHALITIS HERPES [None]
  - LUNG INFILTRATION [None]
  - NEUTROPENIA [None]
